FAERS Safety Report 11794451 (Version 1)
Quarter: 2015Q4

REPORT INFORMATION
  Report Type: Spontaneous
  Country: US (occurrence: US)
  Receive Date: 20151202
  Receipt Date: 20151202
  Transmission Date: 20160305
  Serious: Yes (Hospitalization, Other)
  Sender: FDA-Public Use
  Company Number: US-AMNEAL PHARMACEUTICALS-2015AMN00197

PATIENT
  Age: 1 Day
  Sex: Male
  Weight: 2.2 kg

DRUGS (6)
  1. AZATHIOPRINE. [Suspect]
     Active Substance: AZATHIOPRINE
     Indication: LUPUS-LIKE SYNDROME
     Dosage: 50 MG, 1X/DAY
     Dates: start: 20150320, end: 20150928
  2. CELLCEPT [Suspect]
     Active Substance: MYCOPHENOLATE MOFETIL\MYCOPHENOLATE MOFETIL HYDROCHLORIDE
     Indication: LUPUS-LIKE SYNDROME
     Dosage: 1500 MG, 2X/DAY
     Dates: end: 20150316
  3. PREDNISOLONE. [Suspect]
     Active Substance: PREDNISOLONE
     Indication: LUPUS-LIKE SYNDROME
     Dosage: 5-20MG DAILY
     Dates: start: 2009
  4. CHOLOROQUINE [Suspect]
     Active Substance: CHLOROQUINE
     Indication: LUPUS-LIKE SYNDROME
     Dosage: 125-250MG DAILY
     Dates: start: 2014
  5. CEPHALOSPORIN [Suspect]
     Active Substance: UNSPECIFIED INGREDIENT
     Indication: AMNIOTIC CAVITY INFECTION
     Dosage: UNK
     Dates: start: 20150925, end: 20150930
  6. CEPHALOSPORIN [Suspect]
     Active Substance: UNSPECIFIED INGREDIENT
     Indication: URINARY TRACT INFECTION

REACTIONS (5)
  - Escherichia sepsis [Recovered/Resolved]
  - Maternal drugs affecting foetus [None]
  - Premature baby [Recovered/Resolved]
  - Bacteraemia [Recovered/Resolved]
  - Meningitis [Recovered/Resolved]

NARRATIVE: CASE EVENT DATE: 20150930
